FAERS Safety Report 17263746 (Version 1)
Quarter: 2020Q1

REPORT INFORMATION
  Report Type: Report from Study
  Country: BR (occurrence: BR)
  Receive Date: 20200113
  Receipt Date: 20200113
  Transmission Date: 20200409
  Serious: Yes (Death, Hospitalization, Other)
  Sender: FDA-Public Use
  Company Number: BR-SHIRE-BR201917476

PATIENT

DRUGS (1)
  1. ELAPRASE [Suspect]
     Active Substance: IDURSULFASE
     Indication: PRODUCT USED FOR UNKNOWN INDICATION
     Dosage: 7.5 ML, 1X/WEEK
     Route: 042

REACTIONS (8)
  - Sepsis [Fatal]
  - Respiratory tract infection [Unknown]
  - Syncope [Unknown]
  - Tooth abscess [Fatal]
  - Seizure [Unknown]
  - Mucopolysaccharidosis [Fatal]
  - Hypoxia [Unknown]
  - Acute respiratory failure [Fatal]
